FAERS Safety Report 7133548-X (Version None)
Quarter: 2010Q4

REPORT INFORMATION
  Report Type: 
  Country: None (occurrence: None)
  Receive Date: 20101202
  Receipt Date: 20101123
  Transmission Date: 20110411
  Serious: Yes (Hospitalization, Other)
  Sender: FDA-Public Use
  Company Number: IL-ABBOTT-10P-082-0678983-00

PATIENT
  Age: 57 Year
  Sex: Female

DRUGS (5)
  1. HUMIRA [Suspect]
     Indication: RHEUMATOID ARTHRITIS
  2. INFLIXIMAB [Suspect]
     Indication: RHEUMATOID ARTHRITIS
  3. ETANERCEPT [Suspect]
     Indication: RHEUMATOID ARTHRITIS
  4. METHOTREXATE [Concomitant]
     Indication: RHEUMATOID ARTHRITIS
  5. PREDNISONE [Concomitant]
     Indication: RHEUMATOID ARTHRITIS

REACTIONS (8)
  - ABDOMINAL PAIN [None]
  - ANAL ABSCESS [None]
  - DIARRHOEA [None]
  - DIVERTICULITIS [None]
  - EXTRAPULMONARY TUBERCULOSIS [None]
  - FISTULA [None]
  - GASTRITIS [None]
  - NECROTISING GRANULOMATOUS LYMPHADENITIS [None]
